FAERS Safety Report 14539275 (Version 1)
Quarter: 2018Q1

REPORT INFORMATION
  Report Type: Spontaneous
  Country: US (occurrence: US)
  Receive Date: 20180215
  Receipt Date: 20180215
  Transmission Date: 20180509
  Serious: Yes (Other)
  Sender: FDA-Public Use
  Company Number: None

PATIENT
  Age: 66 Year
  Sex: Female
  Weight: 92.25 kg

DRUGS (11)
  1. MIRAPEX [Concomitant]
     Active Substance: PRAMIPEXOLE DIHYDROCHLORIDE
  2. PREVACID 30 [Concomitant]
  3. CALCIUM [Concomitant]
     Active Substance: CALCIUM
  4. VITAMIN B12 [Concomitant]
     Active Substance: CYANOCOBALAMIN
  5. LETROZOLE. [Concomitant]
     Active Substance: LETROZOLE
  6. IRON [Concomitant]
     Active Substance: IRON
  7. SYNTHROID [Concomitant]
     Active Substance: LEVOTHYROXINE SODIUM
  8. PROZAC [Concomitant]
     Active Substance: FLUOXETINE HYDROCHLORIDE
  9. FAMOTIDINE 40 MG [Suspect]
     Active Substance: FAMOTIDINE
     Indication: GASTROOESOPHAGEAL REFLUX DISEASE
     Dosage: ?          QUANTITY:1 TABLET(S);?
     Route: 048
     Dates: start: 20171216, end: 20180103
  10. LYRICA [Concomitant]
     Active Substance: PREGABALIN
  11. MULTI VITAMIN [Concomitant]
     Active Substance: VITAMINS

REACTIONS (4)
  - Drug ineffective [None]
  - Product quality issue [None]
  - Discomfort [None]
  - Dyspepsia [None]

NARRATIVE: CASE EVENT DATE: 20171216
